FAERS Safety Report 16757679 (Version 1)
Quarter: 2019Q3

REPORT INFORMATION
  Report Type: Spontaneous
  Country: FR (occurrence: FR)
  Receive Date: 20190830
  Receipt Date: 20190830
  Transmission Date: 20191005
  Serious: Yes (Hospitalization)
  Sender: FDA-Public Use
  Company Number: FR-SUN PHARMACEUTICAL INDUSTRIES LTD-2019R1-218712

PATIENT
  Age: 38 Year
  Sex: Female

DRUGS (3)
  1. DOLIPRANE [Suspect]
     Active Substance: ACETAMINOPHEN
     Indication: LIGAMENT SPRAIN
     Dosage: INCONNU ()
     Route: 065
     Dates: start: 20190322
  2. MIRENA [Concomitant]
     Active Substance: LEVONORGESTREL
     Indication: PRODUCT USED FOR UNKNOWN INDICATION
     Dosage: UNK
     Route: 065
  3. IBUPROFENE [Suspect]
     Active Substance: IBUPROFEN
     Indication: LIGAMENT SPRAIN
     Dosage: INCONNUE ()
     Route: 048
     Dates: start: 20190322, end: 20190326

REACTIONS (1)
  - Urticarial vasculitis [Recovering/Resolving]

NARRATIVE: CASE EVENT DATE: 20190325
